FAERS Safety Report 7636180-4 (Version None)
Quarter: 2011Q3

REPORT INFORMATION
  Report Type: 
  Country: None (occurrence: None)
  Receive Date: 20110726
  Receipt Date: 20110720
  Transmission Date: 20111222
  Serious: Yes (Other)
  Sender: FDA-Public Use
  Company Number: US-PFIZER INC-2011165562

PATIENT
  Sex: Female
  Weight: 86.168 kg

DRUGS (1)
  1. TOVIAZ [Suspect]
     Indication: BLADDER DISORDER
     Dosage: 8 MG, DAILY
     Route: 048
     Dates: start: 20110101, end: 20110716

REACTIONS (2)
  - OROPHARYNGEAL BLISTERING [None]
  - TONGUE EXFOLIATION [None]
